FAERS Safety Report 5756228-1 (Version None)
Quarter: 2008Q2

REPORT INFORMATION
  Report Type: 
  Country: None (occurrence: None)
  Receive Date: 20080602
  Receipt Date: 20080521
  Transmission Date: 20081010
  Serious: Yes (Other)
  Sender: FDA-Public Use
  Company Number: JP-PFIZER INC-2008038187

PATIENT
  Sex: Female

DRUGS (8)
  1. SOLANAX [Suspect]
     Indication: BORDERLINE PERSONALITY DISORDER
  2. CERCINE [Concomitant]
  3. DEZOLAM [Concomitant]
  4. ROHYPNOL [Concomitant]
  5. NITRAZEPAM [Concomitant]
  6. LAXOBERON [Concomitant]
  7. TRIAZOLAM [Concomitant]
  8. WYPAX [Concomitant]

REACTIONS (3)
  - DRUG EXPOSURE DURING PREGNANCY [None]
  - MELAENA NEONATAL [None]
  - WEIGHT GAIN POOR [None]
